FAERS Safety Report 4868920-1 (Version None)
Quarter: 2005Q4

REPORT INFORMATION
  Report Type: 
  Country: None (occurrence: None)
  Receive Date: 20051229
  Receipt Date: 20050922
  Transmission Date: 20060501
  Serious: Yes (Hospitalization)
  Sender: FDA-Public Use
  Company Number: US-MERCK-0509USA03612

PATIENT
  Age: 54 Year
  Sex: Female
  Weight: 67 kg

DRUGS (14)
  1. ASPIRIN [Concomitant]
     Route: 065
  2. K-DUR 10 [Concomitant]
     Route: 065
  3. FUROSEMIDE [Concomitant]
     Route: 065
  4. ALPRAZOLAM [Concomitant]
     Route: 065
  5. VIOXX [Suspect]
     Indication: BACK PAIN
     Route: 048
     Dates: start: 20000101, end: 20030201
  6. NITROGLYCERIN [Concomitant]
     Route: 065
  7. NORVASC [Concomitant]
     Route: 065
  8. ATENOLOL [Concomitant]
     Route: 065
  9. LEVOXYL [Concomitant]
     Route: 065
  10. KLOR-CON [Concomitant]
     Route: 065
  11. ZESTRIL [Concomitant]
     Route: 065
  12. HYDROXYZINE HYDROCHLORIDE [Concomitant]
     Route: 065
  13. ROXICET [Concomitant]
     Route: 065
  14. NEOPOLYDEX [Concomitant]
     Route: 065

REACTIONS (11)
  - ACUTE SINUSITIS [None]
  - ANGINA PECTORIS [None]
  - CHEST PAIN [None]
  - CORONARY ARTERY STENOSIS [None]
  - DIABETES MELLITUS NON-INSULIN-DEPENDENT [None]
  - HEADACHE [None]
  - HYPERTHYROIDISM [None]
  - OEDEMA PERIPHERAL [None]
  - OSTEOPOROSIS [None]
  - OVERDOSE [None]
  - PALPITATIONS [None]
